FAERS Safety Report 5501101-7 (Version None)
Quarter: 2007Q4

REPORT INFORMATION
  Report Type: 
  Country: None (occurrence: None)
  Receive Date: 20071026
  Receipt Date: 20071005
  Transmission Date: 20080405
  Serious: Yes (Hospitalization)
  Sender: FDA-Public Use
  Company Number: 2007US002472

PATIENT
  Age: 75 Year
  Sex: Female
  Weight: 104.3 kg

DRUGS (6)
  1. AMEVIVE [Suspect]
     Indication: PSORIASIS
     Dosage: 15 MG, WEEKLY, INTRAMUSCULAR
     Route: 030
     Dates: start: 20030717, end: 20031002
  2. MAXZIDE [Concomitant]
  3. ZOLOFT [Concomitant]
  4. GLUCOPHAGE [Concomitant]
  5. LEVOTHYROXINE SODIUM [Concomitant]
  6. MOBIC [Concomitant]

REACTIONS (10)
  - ABDOMINAL HERNIA [None]
  - ATRIAL FIBRILLATION [None]
  - BLOOD CHLORIDE DECREASED [None]
  - BLOOD CREATININE INCREASED [None]
  - BLOOD SODIUM DECREASED [None]
  - BLOOD UREA INCREASED [None]
  - EJECTION FRACTION DECREASED [None]
  - PYREXIA [None]
  - RADIAL NERVE PALSY [None]
  - SLEEP APNOEA SYNDROME [None]
